FAERS Safety Report 6152855-0 (Version None)
Quarter: 2009Q2

REPORT INFORMATION
  Report Type: 
  Country: None (occurrence: None)
  Receive Date: 20090413
  Receipt Date: 20090407
  Transmission Date: 20091009
  Serious: Yes (Hospitalization)
  Sender: FDA-Public Use
  Company Number: US-BRISTOL-MYERS SQUIBB COMPANY-13632781

PATIENT
  Age: 71 Year
  Sex: Male

DRUGS (15)
  1. APIXABAN [Suspect]
     Indication: THROMBOSIS PROPHYLAXIS
     Dates: start: 20061106, end: 20061229
  2. OMEPRAZOLE [Concomitant]
  3. METOPROLOL [Concomitant]
  4. ASPIRIN [Concomitant]
  5. HYDROCHLOROTHIAZIDE [Concomitant]
  6. TRAVATAN [Concomitant]
     Route: 031
  7. AZOPT [Concomitant]
     Route: 031
  8. DECADRON [Concomitant]
  9. KYTRIL [Concomitant]
  10. ARANESP [Concomitant]
  11. CELEXA [Concomitant]
     Dates: start: 20061127, end: 20061130
  12. LEVAQUIN [Concomitant]
     Dates: start: 20061207
  13. BECONASE [Concomitant]
  14. DOCETAXEL [Concomitant]
     Indication: PROSTATE CANCER
     Dates: start: 20061106
  15. PREDNISONE TAB [Concomitant]
     Indication: PROSTATE CANCER
     Dates: start: 20061106

REACTIONS (1)
  - LOWER GASTROINTESTINAL HAEMORRHAGE [None]
